FAERS Safety Report 10263888 (Version 1)
Quarter: 2014Q2

REPORT INFORMATION
  Report Type: Spontaneous
  Country: US (occurrence: US)
  Receive Date: 20140627
  Receipt Date: 20140627
  Transmission Date: 20141212
  Serious: No
  Sender: FDA-Public Use
  Company Number: US-AMGEN INC.-USASP2014046433

PATIENT
  Age: 64 Year
  Sex: Male

DRUGS (4)
  1. ENBREL [Suspect]
     Indication: RHEUMATOID ARTHRITIS
     Dosage: 50 MG, QWK
     Route: 065
     Dates: end: 201406
  2. SIMVASTATIN [Concomitant]
     Dosage: 400 MG, DAILY
  3. FOSAMAX [Concomitant]
     Dosage: 70 MG, QWK
  4. CALTRATE WITH VITAMIN D [Concomitant]
     Dosage: 600 MG, BID

REACTIONS (2)
  - Scab [Unknown]
  - Herpes zoster [Recovering/Resolving]
